FAERS Safety Report 7882916-7 (Version None)
Quarter: 2011Q4

REPORT INFORMATION
  Report Type: 
  Country: None (occurrence: None)
  Receive Date: 20111101
  Receipt Date: 20111026
  Transmission Date: 20120403
  Serious: Yes (Other)
  Sender: FDA-Public Use
  Company Number: FI-AMGEN-FINSP2011055626

PATIENT
  Sex: Female

DRUGS (2)
  1. KALCIPOS-D [Concomitant]
  2. PROLIA [Suspect]
     Indication: OSTEOPOROSIS
     Dosage: UNK
     Dates: start: 20110401

REACTIONS (2)
  - ARRHYTHMIA [None]
  - HEART RATE DECREASED [None]
